FAERS Safety Report 5266690-9 (Version None)
Quarter: 2007Q1

REPORT INFORMATION
  Report Type: 
  Country: None (occurrence: None)
  Receive Date: 20070312
  Receipt Date: 20070227
  Transmission Date: 20070707
  Serious: No
  Sender: FDA-Public Use
  Company Number: 2007-155094-NL

PATIENT
  Age: 35 Year
  Sex: Female

DRUGS (1)
  1. MARVELON [Suspect]
     Indication: MENORRHAGIA
     Dosage: 1 DF ORAL
     Route: 048
     Dates: start: 20050501, end: 20070129

REACTIONS (1)
  - GLOMERULONEPHRITIS CHRONIC [None]
